FAERS Safety Report 7021590-9 (Version None)
Quarter: 2010Q3

REPORT INFORMATION
  Report Type: 
  Country: None (occurrence: None)
  Receive Date: 20100928
  Receipt Date: 20100913
  Transmission Date: 20110219
  Serious: Yes (Hospitalization)
  Sender: FDA-Public Use
  Company Number: A-US2010-39734

PATIENT
  Age: 14 Year
  Sex: Male

DRUGS (3)
  1. TRACLEER [Suspect]
     Indication: PULMONARY ARTERIAL HYPERTENSION
     Dosage: ORAL
     Route: 048
     Dates: start: 20070105
  2. VENTAVIS [Concomitant]
  3. REVATIO [Concomitant]

REACTIONS (3)
  - LIVER DISORDER [None]
  - OFF LABEL USE [None]
  - STENT PLACEMENT [None]
